FAERS Safety Report 8053995-1 (Version None)
Quarter: 2012Q1

REPORT INFORMATION
  Report Type: 
  Country: None (occurrence: None)
  Receive Date: 20120118
  Receipt Date: 20120105
  Transmission Date: 20120608
  Serious: Yes (Hospitalization)
  Sender: FDA-Public Use
  Company Number: JP-NAPPMUNDI-MAG-2012-0002007

PATIENT
  Age: 69 Year
  Sex: Male
  Weight: 63.447 kg

DRUGS (26)
  1. OXYCODONE HCL [Suspect]
     Indication: PAIN
     Dosage: 50 MG, BID
     Route: 048
     Dates: start: 20110617
  2. DECADRON [Suspect]
     Dosage: 1 MG, DAILY
     Route: 048
     Dates: start: 20111014, end: 20111028
  3. ACETAMINOPHEN [Concomitant]
     Dosage: UNK
     Dates: start: 20110608, end: 20110916
  4. MUCOSTA [Concomitant]
     Dosage: UNK
     Dates: start: 20110628
  5. VEEN D [Concomitant]
     Dosage: UNK
     Dates: start: 20110927, end: 20110929
  6. DECADRON [Suspect]
     Dosage: 2 MG, DAILY
     Route: 048
     Dates: start: 20111029
  7. TELEMINSOFT [Concomitant]
     Dosage: UNK
     Route: 054
     Dates: start: 20101109
  8. HIRUDOID                           /00723701/ [Concomitant]
     Dosage: UNK
     Dates: start: 20101118
  9. GASMOTIN [Concomitant]
     Dosage: UNK
     Dates: start: 20110401
  10. AXITINIB [Suspect]
     Indication: METASTATIC RENAL CELL CARCINOMA
     Dosage: 5 MG, BID
     Dates: start: 20101116, end: 20110714
  11. PURSENNID                          /00142207/ [Concomitant]
     Dosage: UNK
     Dates: start: 20101103
  12. ZOMETA [Concomitant]
     Dosage: UNK
     Dates: start: 20110922, end: 20110922
  13. LAC B [Concomitant]
     Dosage: UNK
     Dates: start: 20110326
  14. DAIKENTYUTO [Concomitant]
     Dosage: UNK
     Dates: start: 20110729
  15. NORVASC [Concomitant]
     Dosage: UNK
     Dates: start: 20110920
  16. AMLODIPINE [Concomitant]
     Dosage: UNK
     Dates: start: 20110711, end: 20110717
  17. OXYCODONE HCL [Suspect]
     Dosage: 40 MG, BID
     Route: 048
     Dates: start: 20110507, end: 20110616
  18. AXITINIB [Suspect]
     Dosage: 2 MG, BID
     Dates: start: 20101214, end: 20110714
  19. PRORENAL [Concomitant]
     Dosage: UNK
     Dates: start: 20110826
  20. DECADRON [Suspect]
     Indication: PYREXIA
     Dosage: 0.5 MG, DAILY
     Route: 048
     Dates: start: 20110825, end: 20110926
  21. MOBIC [Concomitant]
     Dosage: UNK
     Dates: start: 20101104, end: 20110916
  22. OXYCODONE HCL [Suspect]
     Indication: PAIN
     Dosage: 10 MG, PRN
     Dates: start: 20110506
  23. MAGNESIUM OXIDE [Concomitant]
     Dosage: UNK
     Dates: start: 20101103
  24. LANSOPRAZOLE [Concomitant]
     Dosage: UNK
     Dates: start: 20101112
  25. OLMESARTAN MEDOXOMIL [Concomitant]
     Dosage: UNK
     Dates: start: 20110831
  26. TIZANIDINE HCL [Concomitant]
     Dosage: UNK
     Dates: start: 20110826

REACTIONS (5)
  - ENTEROCOLITIS [None]
  - PYREXIA [None]
  - VOMITING [None]
  - EXTRADURAL ABSCESS [None]
  - ABDOMINAL DISTENSION [None]
